FAERS Safety Report 8142126-5 (Version None)
Quarter: 2012Q1

REPORT INFORMATION
  Report Type: 
  Country: None (occurrence: None)
  Receive Date: 20120103
  Receipt Date: 20110902
  Transmission Date: 20120608
  Serious: No
  Sender: FDA-Public Use
  Company Number: AE-2011-001310

PATIENT
  Age: 54 Year
  Sex: Male
  Weight: 81.6475 kg

DRUGS (7)
  1. RIBASPHERE [Concomitant]
  2. LORAZEPAM [Concomitant]
  3. WELLBUTRIN [Concomitant]
  4. INCIVEK [Suspect]
     Dosage: 2250 MG (750 MG,1 IN 8 HR),ORAL
     Route: 048
     Dates: start: 20110620
  5. PEGASYS [Concomitant]
  6. LORTAB [Concomitant]
  7. AMBIEN [Concomitant]

REACTIONS (2)
  - VOMITING [None]
  - NAUSEA [None]
